FAERS Safety Report 6877068-6 (Version None)
Quarter: 2010Q3

REPORT INFORMATION
  Report Type: 
  Country: None (occurrence: None)
  Receive Date: 20100727
  Receipt Date: 20100727
  Transmission Date: 20110219
  Serious: Yes (Life-Threatening, Hospitalization, Disabling)
  Sender: FDA-Public Use
  Company Number: None

PATIENT
  Age: 25 Year
  Sex: Female
  Weight: 63.5036 kg

DRUGS (2)
  1. YAZ [Suspect]
     Indication: ACNE
     Dosage: ONE PILL ONCE A DAY PO
     Route: 048
     Dates: start: 20071121, end: 20080708
  2. YAZ [Suspect]
     Indication: MOOD ALTERED
     Dosage: ONE PILL ONCE A DAY PO
     Route: 048
     Dates: start: 20071121, end: 20080708

REACTIONS (4)
  - DYSPNOEA [None]
  - HYPOAESTHESIA [None]
  - PULMONARY EMBOLISM [None]
  - SUBCLAVIAN VEIN THROMBOSIS [None]
